FAERS Safety Report 7171397-7 (Version None)
Quarter: 2010Q4

REPORT INFORMATION
  Report Type: 
  Country: None (occurrence: None)
  Receive Date: 20101217
  Receipt Date: 20101206
  Transmission Date: 20110411
  Serious: Yes (Hospitalization, Disabling, Other)
  Sender: FDA-Public Use
  Company Number: US-PFIZER INC-2010110991

PATIENT
  Sex: Female

DRUGS (3)
  1. SOLU-MEDROL [Suspect]
     Indication: COLITIS ULCERATIVE
     Dosage: 1000 MG
     Route: 041
     Dates: start: 19810101
  2. PRISTIQ [Suspect]
     Indication: DEPRESSION
     Dosage: 50 MG, DAILY
     Route: 048
     Dates: start: 20100501
  3. PREDNISONE [Suspect]
     Indication: COLITIS ULCERATIVE
     Dosage: UNK
     Route: 048
     Dates: start: 19810101

REACTIONS (12)
  - COLITIS ULCERATIVE [None]
  - DEPRESSION [None]
  - DRUG INEFFECTIVE [None]
  - FALL [None]
  - HYPOAESTHESIA [None]
  - MEDICATION RESIDUE [None]
  - MULTIPLE SCLEROSIS [None]
  - MULTIPLE SCLEROSIS RELAPSE [None]
  - PRURITUS [None]
  - STRESS [None]
  - SWELLING [None]
  - WEIGHT INCREASED [None]
